FAERS Safety Report 8569111 (Version 2)
Quarter: 2014Q1

REPORT INFORMATION
  Report Type: Spontaneous
  Country: US (occurrence: US)
  Receive Date: 20120518
  Receipt Date: 20140128
  Transmission Date: 20141002
  Serious: Yes (Hospitalization, Disabling, Other)
  Sender: FDA-Public Use
  Company Number: US-ELI_LILLY_AND_COMPANY-US201205000124

PATIENT
  Age: 66 Year
  Sex: Female

DRUGS (17)
  1. HUMALOG LISPRO [Suspect]
     Indication: TYPE 1 DIABETES MELLITUS
     Dosage: UNK, PRN
     Route: 065
  2. HUMALOG LISPRO [Suspect]
     Dosage: UNK, PRN
     Route: 065
  3. HUMALOG LISPRO [Suspect]
     Indication: TYPE 1 DIABETES MELLITUS
     Dosage: UNK, PRN
     Route: 065
  4. HUMULIN NPH [Suspect]
     Indication: TYPE 1 DIABETES MELLITUS
     Dosage: 50 U, EACH MORNING
     Route: 065
  5. HUMULIN NPH [Suspect]
     Dosage: 50 U, EACH MORNING
     Route: 065
  6. METFORMIN HCL [Concomitant]
     Dosage: 500 MG, QD
  7. METHADONE [Concomitant]
  8. HYDROCODONE W/ACETAMINOPHEN [Concomitant]
  9. LISINOPRIL [Concomitant]
  10. ATORVASTATIN [Concomitant]
  11. METOPROLOL [Concomitant]
  12. ESLAX [Concomitant]
  13. VITAMIN B-12 [Concomitant]
  14. CALCIUM [Concomitant]
  15. CITALOPRAM [Concomitant]
  16. CLOPIDOGREL [Concomitant]
  17. LEVOTHYROXINE [Concomitant]

REACTIONS (9)
  - Gangrene [Not Recovered/Not Resolved]
  - Poor peripheral circulation [Unknown]
  - Blood glucose increased [Unknown]
  - Blood glucose decreased [Unknown]
  - Lymphatic disorder [Unknown]
  - Fear [Unknown]
  - Feeling abnormal [Unknown]
  - Hypoaesthesia [Unknown]
  - Peripheral coldness [Unknown]
